FAERS Safety Report 7866429-4 (Version None)
Quarter: 2011Q4

REPORT INFORMATION
  Report Type: 
  Country: None (occurrence: None)
  Receive Date: 20111028
  Receipt Date: 20110615
  Transmission Date: 20120403
  Serious: No
  Sender: FDA-Public Use
  Company Number: US-GLAXOSMITHKLINE-A0931635A

PATIENT
  Age: 72 Year
  Sex: Male

DRUGS (12)
  1. CARVEDILOL [Concomitant]
  2. XOPENEX [Concomitant]
  3. DOXEPIN [Concomitant]
  4. LEXAPRO [Concomitant]
  5. ACTOS [Concomitant]
  6. BENAZEPRIL HYDROCHLORIDE [Concomitant]
  7. VITAMIN D [Concomitant]
  8. ALPRAZOLAM [Concomitant]
  9. VYTORIN [Concomitant]
  10. LANTUS [Concomitant]
  11. ADVAIR DISKUS 100/50 [Suspect]
     Indication: PRODUCT USED FOR UNKNOWN INDICATION
     Dosage: 1PUFF TWICE PER DAY
     Route: 055
  12. NOVOLOG [Concomitant]

REACTIONS (1)
  - TOOTHACHE [None]
